FAERS Safety Report 5584572-X (Version None)
Quarter: 2008Q1

REPORT INFORMATION
  Report Type: 
  Country: None (occurrence: None)
  Receive Date: 20080103
  Receipt Date: 20071220
  Transmission Date: 20080703
  Serious: Yes (Death, Life-Threatening, Hospitalization)
  Sender: FDA-Public Use
  Company Number: S07-FRA-06443-01

PATIENT
  Age: 83 Year
  Sex: Female

DRUGS (1)
  1. MEMANTINE HCL [Suspect]
     Dosage: 5 MG ONCE PO
     Route: 048
     Dates: start: 20071116, end: 20071116

REACTIONS (2)
  - PULMONARY EMBOLISM [None]
  - PULMONARY INFARCTION [None]
